FAERS Safety Report 24923854 (Version 1)
Quarter: 2025Q1

REPORT INFORMATION
  Report Type: Spontaneous
  Country: US (occurrence: US)
  Receive Date: 20250204
  Receipt Date: 20250204
  Transmission Date: 20250409
  Serious: No
  Sender: PERRIGO
  Company Number: US-PERRIGO-24US011343

PATIENT
  Age: 59 Year
  Sex: Female

DRUGS (2)
  1. GUAIFENESIN\PSEUDOEPHEDRINE HYDROCHLORIDE [Suspect]
     Active Substance: GUAIFENESIN\PSEUDOEPHEDRINE HYDROCHLORIDE
     Indication: Sinus disorder
     Route: 048
     Dates: start: 20241204, end: 20241206
  2. GUAIFENESIN\PSEUDOEPHEDRINE HYDROCHLORIDE [Suspect]
     Active Substance: GUAIFENESIN\PSEUDOEPHEDRINE HYDROCHLORIDE
     Indication: Hypersensitivity

REACTIONS (3)
  - Insomnia [Recovered/Resolved]
  - Drug ineffective [Unknown]
  - Underdose [Unknown]

NARRATIVE: CASE EVENT DATE: 20241204
